FAERS Safety Report 5525730-X (Version None)
Quarter: 2007Q4

REPORT INFORMATION
  Report Type: 
  Country: None (occurrence: None)
  Receive Date: 20071126
  Receipt Date: 20071114
  Transmission Date: 20080405
  Serious: Yes (Hospitalization)
  Sender: FDA-Public Use
  Company Number: FR-ROCHE-532118

PATIENT
  Age: 58 Year
  Sex: Female

DRUGS (6)
  1. ROCEPHIN [Suspect]
     Dosage: FORM REPORTED: INJECTABLE SOLUTION
     Route: 042
     Dates: start: 20070827, end: 20070901
  2. DI ANTALVIC [Concomitant]
  3. FORLAX [Concomitant]
  4. PROZAC [Concomitant]
  5. ENTOCORT EC [Concomitant]
  6. PENTASA [Concomitant]

REACTIONS (2)
  - MUSCULOSKELETAL PAIN [None]
  - RASH [None]
